FAERS Safety Report 23768259 (Version 2)
Quarter: 2024Q2

REPORT INFORMATION
  Report Type: Report from Study
  Country: GB (occurrence: None)
  Receive Date: 20240422
  Receipt Date: 20240522
  Transmission Date: 20240716
  Serious: Yes (Other)
  Sender: FDA-Public Use
  Company Number: GB-SAMSUNG BIOEPIS-SB-2024-10923

PATIENT
  Age: 76 Year
  Sex: Female

DRUGS (4)
  1. METHOTREXATE [Suspect]
     Active Substance: METHOTREXATE
     Indication: Product used for unknown indication
  2. ETANERCEPT [Suspect]
     Active Substance: ETANERCEPT
     Indication: Rheumatoid arthritis
     Dates: start: 20240214, end: 2024
  3. DOXYCYCLINE [Suspect]
     Active Substance: DOXYCYCLINE\DOXYCYCLINE HYCLATE
     Indication: Lower respiratory tract infection
     Dates: start: 20240404, end: 20240419
  4. DOXYCYCLINE [Suspect]
     Active Substance: DOXYCYCLINE\DOXYCYCLINE HYCLATE
     Dosage: CONTINUE DOXYCYCLINE

REACTIONS (5)
  - Lower respiratory tract infection [Unknown]
  - Dyspnoea [Unknown]
  - Illness [Unknown]
  - Pain in extremity [Unknown]
  - Headache [Recovered/Resolved]
